FAERS Safety Report 9951093 (Version 2)
Quarter: 2014Q1

REPORT INFORMATION
  Report Type: Report from Study
  Country: US (occurrence: US)
  Receive Date: 20140304
  Receipt Date: 20140312
  Transmission Date: 20141002
  Serious: Yes (Hospitalization)
  Sender: FDA-Public Use
  Company Number: US-ACTELION-A-US2014-95357

PATIENT
  Age: 64 Year
  Sex: Male

DRUGS (2)
  1. TRACLEER [Suspect]
     Indication: COR PULMONALE CHRONIC
     Dosage: UNK
     Route: 048
     Dates: end: 201401
  2. COUMADIN [Concomitant]

REACTIONS (4)
  - Liver disorder [Recovering/Resolving]
  - Lung disorder [Recovering/Resolving]
  - Renal impairment [Recovering/Resolving]
  - Treatment noncompliance [Unknown]
